FAERS Safety Report 23296228 (Version 1)
Quarter: 2023Q4

REPORT INFORMATION
  Report Type: Spontaneous
  Country: None (occurrence: US)
  Receive Date: 20231214
  Receipt Date: 20231214
  Transmission Date: 20240110
  Serious: No
  Sender: FDA-Public Use
  Company Number: US-LGM Pharma Solutions, LLC-2149347

PATIENT
  Age: 53 Year
  Sex: Female

DRUGS (1)
  1. CHENODIOL [Suspect]
     Active Substance: CHENODIOL
     Indication: Cholelithiasis obstructive
     Route: 048
     Dates: start: 20140711

REACTIONS (2)
  - Feeling abnormal [Unknown]
  - Bedridden [Unknown]
